FAERS Safety Report 8001476-3 (Version None)
Quarter: 2011Q4

REPORT INFORMATION
  Report Type: 
  Country: None (occurrence: None)
  Receive Date: 20111219
  Receipt Date: 20111202
  Transmission Date: 20120403
  Serious: Yes (Hospitalization, Disabling, Other)
  Sender: FDA-Public Use
  Company Number: 2011AP002941

PATIENT
  Age: 33 Year
  Sex: Male
  Weight: 136.0791 kg

DRUGS (14)
  1. VICODIN [Suspect]
     Indication: BACK PAIN
  2. ATORVASTATIN CALCIUM [Concomitant]
  3. HYDROXYCUT [Suspect]
     Indication: PRODUCT USED FOR UNKNOWN INDICATION
     Dates: start: 20070101
  4. HYDROXYCUT [Suspect]
     Indication: PRODUCT USED FOR UNKNOWN INDICATION
     Dates: start: 20071101
  5. HYDROXYCUT [Suspect]
     Indication: PRODUCT USED FOR UNKNOWN INDICATION
     Dates: start: 20090201
  6. HYDROXYCUT [Suspect]
     Indication: PRODUCT USED FOR UNKNOWN INDICATION
     Dates: start: 20090401
  7. CHLORTHALIDONE [Concomitant]
  8. HYDROCHLOROTHIAZIDE [Suspect]
     Indication: HYPERTENSION
     Dosage: 25 MG;QD;PO
     Route: 048
     Dates: start: 20030822, end: 20080610
  9. CLONIDINE [Concomitant]
  10. ATENOLOL [Concomitant]
  11. HYDROXYZINE [Concomitant]
  12. LISINOPRIL [Suspect]
     Indication: HYPERTENSION
     Dates: end: 20080610
  13. VALSARTAN [Concomitant]
  14. FELODIPINE [Concomitant]

REACTIONS (25)
  - MUSCLE STRAIN [None]
  - SNORING [None]
  - RASH [None]
  - PAIN IN EXTREMITY [None]
  - FATIGUE [None]
  - BACK PAIN [None]
  - GASTRITIS [None]
  - THYROID NEOPLASM [None]
  - WRIST FRACTURE [None]
  - PAIN [None]
  - BACK INJURY [None]
  - PLANTAR FASCIITIS [None]
  - HEPATIC STEATOSIS [None]
  - DIABETES MELLITUS [None]
  - NAUSEA [None]
  - URINARY TRACT INFECTION [None]
  - VIRAL INFECTION [None]
  - CHEST PAIN [None]
  - SLEEP APNOEA SYNDROME [None]
  - FALL [None]
  - PHARYNGITIS [None]
  - MYALGIA [None]
  - DIZZINESS [None]
  - CELLULITIS [None]
  - ADVERSE DRUG REACTION [None]
